FAERS Safety Report 19737393 (Version 15)
Quarter: 2023Q2

REPORT INFORMATION
  Report Type: Report from Study
  Country: RU (occurrence: RU)
  Receive Date: 20210824
  Receipt Date: 20230522
  Transmission Date: 20230721
  Serious: Yes (Death, Life-Threatening, Hospitalization)
  Sender: FDA-Public Use
  Company Number: RU-GLAXOSMITHKLINE-RU2021092519

PATIENT

DRUGS (4)
  1. BELANTAMAB MAFODOTIN [Suspect]
     Active Substance: BELANTAMAB MAFODOTIN
     Indication: Plasma cell myeloma
     Dosage: 200 MG, CYC (2.5 MG/KG)
     Route: 042
     Dates: start: 20210419, end: 20210419
  2. BORTEZOMIB [Suspect]
     Active Substance: BORTEZOMIB
     Indication: Plasma cell myeloma
     Dosage: 2.50 MG, CYC (1.3 MG/M2)
     Route: 058
     Dates: start: 20210419, end: 20210422
  3. DEXAMETHASONE [Suspect]
     Active Substance: DEXAMETHASONE
     Indication: Plasma cell myeloma
     Dosage: 20 MG, CYC
     Route: 042
     Dates: start: 20210419, end: 20210423
  4. DEXAMETHASONE [Suspect]
     Active Substance: DEXAMETHASONE
     Indication: Plasma cell myeloma
     Dosage: 20 MG, QD
     Route: 048
     Dates: start: 20210420, end: 20210423

REACTIONS (2)
  - Peritonitis [Fatal]
  - Thrombosis mesenteric vessel [Fatal]

NARRATIVE: CASE EVENT DATE: 20210426
